FAERS Safety Report 6463460-0 (Version None)
Quarter: 2009Q4

REPORT INFORMATION
  Report Type: 
  Country: None (occurrence: None)
  Receive Date: 20091201
  Receipt Date: 20091019
  Transmission Date: 20100525
  Serious: Yes (Other)
  Sender: FDA-Public Use
  Company Number: US-AMGEN-QUU369962

PATIENT
  Sex: Female

DRUGS (2)
  1. ENBREL [Suspect]
     Indication: RHEUMATOID ARTHRITIS
     Route: 058
     Dates: start: 20070608
  2. METHOTREXATE [Concomitant]
     Dates: start: 20060101

REACTIONS (5)
  - EYE INFECTION [None]
  - HYPERTHYROIDISM [None]
  - LOWER RESPIRATORY TRACT INFECTION [None]
  - MIDDLE EAR EFFUSION [None]
  - STAPHYLOCOCCAL INFECTION [None]
